FAERS Safety Report 6539630-X (Version None)
Quarter: 2010Q1

REPORT INFORMATION
  Report Type: 
  Country: None (occurrence: None)
  Receive Date: 20100115
  Receipt Date: 20100107
  Transmission Date: 20100710
  Serious: Yes (Hospitalization)
  Sender: FDA-Public Use
  Company Number: GXKR2010GB00562

PATIENT
  Age: 47 Year
  Sex: Male

DRUGS (1)
  1. SIMVASTATIN (NGX) [Suspect]
     Indication: HYPERLIPIDAEMIA
     Dosage: 40 MG, QD
     Route: 065

REACTIONS (5)
  - CONTUSION [None]
  - PAIN IN EXTREMITY [None]
  - SWELLING [None]
  - TENDON OPERATION [None]
  - TENDON RUPTURE [None]
